FAERS Safety Report 5345841-1 (Version None)
Quarter: 2007Q2

REPORT INFORMATION
  Report Type: 
  Country: None (occurrence: None)
  Receive Date: 20070426
  Receipt Date: 20060831
  Transmission Date: 20071010
  Serious: Yes (Other)
  Sender: FDA-Public Use
  Company Number: US-JNJFOC-20060900689

PATIENT
  Age: 24 Year
  Sex: Female

DRUGS (3)
  1. ULTRAM [Suspect]
     Indication: PAIN
     Dosage: ORAL
     Route: 048
     Dates: start: 20060101, end: 20060101
  2. IMITREX [Concomitant]
  3. ANTIDEPRESSANT (NOS) (ANTIDEPRESSANTS) [Concomitant]

REACTIONS (2)
  - DYSPNOEA [None]
  - HEART RATE INCREASED [None]
